FAERS Safety Report 5730415-0 (Version None)
Quarter: 2008Q2

REPORT INFORMATION
  Report Type: 
  Country: None (occurrence: None)
  Receive Date: 20080505
  Receipt Date: 20080505
  Transmission Date: 20081010
  Serious: Yes (Other)
  Sender: FDA-Public Use
  Company Number: None

PATIENT
  Age: 58 Year
  Sex: Female
  Weight: 77.1115 kg

DRUGS (2)
  1. LISINOPRIL [Suspect]
     Indication: DIABETES MELLITUS
     Dosage: 1 DAILY
     Dates: start: 19991001, end: 20010430
  2. LISINOPRIL [Suspect]
     Indication: HYPERTENSION
     Dosage: 1 DAILY
     Dates: start: 19991001, end: 20010430

REACTIONS (1)
  - HYPERSENSITIVITY [None]
